APPROVED DRUG PRODUCT: KEFUROX
Active Ingredient: CEFUROXIME SODIUM
Strength: EQ 1.5GM BASE/VIAL
Dosage Form/Route: INJECTABLE;INJECTION
Application: A062591 | Product #002
Applicant: ACS DOBFAR SPA
Approved: Jan 10, 1986 | RLD: No | RS: No | Type: DISCN